FAERS Safety Report 16983725 (Version 5)
Quarter: 2022Q4

REPORT INFORMATION
  Report Type: Report from Study
  Country: JP (occurrence: JP)
  Receive Date: 20191101
  Receipt Date: 20221206
  Transmission Date: 20230113
  Serious: Yes (Death, Other)
  Sender: FDA-Public Use
  Company Number: JP-SHIRE-JP201936960AA

PATIENT
  Age: 9 Year
  Sex: Female
  Weight: 21.9 kg

DRUGS (2)
  1. VELAGLUCERASE ALFA [Suspect]
     Active Substance: VELAGLUCERASE ALFA
     Indication: Gaucher^s disease type II
     Dosage: 60 INTERNATIONAL UNIT/KILOGRAM, 1X/2WKS
     Route: 042
     Dates: start: 20171020, end: 20191003
  2. IMIGLUCERASE RECOMBINANT [Concomitant]
     Indication: Gaucher^s disease type II
     Dosage: UNK
     Route: 065
     Dates: start: 20101104, end: 20171003

REACTIONS (1)
  - Ventricular fibrillation [Fatal]

NARRATIVE: CASE EVENT DATE: 20191011
